FAERS Safety Report 6010292-3 (Version None)
Quarter: 2008Q4

REPORT INFORMATION
  Report Type: 
  Country: None (occurrence: None)
  Receive Date: 20081218
  Receipt Date: 20080617
  Transmission Date: 20090506
  Serious: No
  Sender: FDA-Public Use
  Company Number: A0725472A

PATIENT
  Age: 46 Year
  Sex: Female

DRUGS (2)
  1. FLONASE [Suspect]
     Indication: NASAL CONGESTION
     Dosage: 4SPR PER DAY
     Route: 045
     Dates: start: 20080418, end: 20080421
  2. SUDAFED 12 HOUR [Concomitant]

REACTIONS (3)
  - DRUG INEFFECTIVE [None]
  - NASAL CONGESTION [None]
  - PRODUCT QUALITY ISSUE [None]
